FAERS Safety Report 9360705 (Version 1)
Quarter: 2013Q2

REPORT INFORMATION
  Report Type: Spontaneous
  Country: JP (occurrence: None)
  Receive Date: 20130618
  Receipt Date: 20130618
  Transmission Date: 20140414
  Serious: Yes (Hospitalization, Other)
  Sender: FDA-Public Use
  Company Number: AXC-2013-000248

PATIENT
  Age: 72 Year
  Sex: Female

DRUGS (9)
  1. URSODEOXYCHOLIC ACID [Suspect]
     Indication: PRODUCT USED FOR UNKNOWN INDICATION
  2. SORAFENIB [Suspect]
     Dates: start: 201104
  3. PREDNISOLONE [Suspect]
     Route: 048
     Dates: start: 2012, end: 2012
  4. VOGLIBOSE (VOGLIBOSE) [Concomitant]
  5. GLIMEPIRIDE (GLIMEPIRIDE) [Concomitant]
  6. AMINO ACIDS GRANULE [Concomitant]
  7. CARBOCISTEINE (CARBOCISTEINE) [Concomitant]
  8. RABEPRAZOLE (RABEPRAZOLE) [Concomitant]
  9. LEVOTHYROXINE (LEVOTHYROXINE) [Concomitant]

REACTIONS (6)
  - Hepatocellular carcinoma [None]
  - Erythema [None]
  - Stomatitis [None]
  - Drug interaction [None]
  - Drug level increased [None]
  - Diarrhoea [None]
